FAERS Safety Report 6760852-7 (Version None)
Quarter: 2010Q2

REPORT INFORMATION
  Report Type: 
  Country: None (occurrence: None)
  Receive Date: 20100608
  Receipt Date: 20100601
  Transmission Date: 20101027
  Serious: Yes (Hospitalization)
  Sender: FDA-Public Use
  Company Number: US-GILEAD-2010-0029151

PATIENT
  Sex: Female
  Weight: 54.026 kg

DRUGS (12)
  1. LETAIRIS [Suspect]
     Indication: PULMONARY ARTERIAL HYPERTENSION
     Route: 048
     Dates: start: 20090128
  2. TYVASO [Concomitant]
  3. LASIX [Concomitant]
  4. FOLIC ACID [Concomitant]
  5. TRAMADOL [Concomitant]
  6. NABUMETONE [Concomitant]
  7. THALOMID [Concomitant]
  8. OMEPRAZOLE [Concomitant]
  9. ALLOPURINOL [Concomitant]
  10. AMARYL [Concomitant]
  11. PREDNISONE [Concomitant]
  12. ASPIRIN [Concomitant]

REACTIONS (3)
  - DYSPNOEA [None]
  - FLUID OVERLOAD [None]
  - PULMONARY HYPERTENSION [None]
